FAERS Safety Report 9758887 (Version 1)
Quarter: 2013Q4

REPORT INFORMATION
  Report Type: Spontaneous
  Country: US (occurrence: None)
  Receive Date: 20131216
  Receipt Date: 20131216
  Transmission Date: 20140711
  Serious: No
  Sender: FDA-Public Use
  Company Number: 1305USA005466

PATIENT
  Sex: Female

DRUGS (1)
  1. ZIOPTAN (TAFLUPROST) EYE DROPS, SOLUTION 0.0015% [Suspect]
     Indication: GLAUCOMA
     Dosage: UNK

REACTIONS (2)
  - Eye pruritus [None]
  - Ocular hyperaemia [None]
